FAERS Safety Report 24206592 (Version 1)
Quarter: 2024Q3

REPORT INFORMATION
  Report Type: Spontaneous
  Country: US (occurrence: US)
  Receive Date: 20240813
  Receipt Date: 20240813
  Transmission Date: 20241017
  Serious: Yes (Other)
  Sender: INSUD PHARMA
  Company Number: US-INSUD PHARMA-2408US06306

PATIENT

DRUGS (2)
  1. TESTOSTERONE [Suspect]
     Active Substance: TESTOSTERONE
     Indication: Hypogonadism
     Dosage: 250 MG/ML INJECTIONS EVERY 7-10 DAYS
     Route: 030
     Dates: start: 2016, end: 2023
  2. TESTOSTERONE [Suspect]
     Active Substance: TESTOSTERONE
     Dosage: UNK
     Route: 065
     Dates: start: 2010, end: 2015

REACTIONS (8)
  - Invasive ductal breast carcinoma [Not Recovered/Not Resolved]
  - Hormone receptor positive HER2 negative breast cancer [Not Recovered/Not Resolved]
  - Breast cancer male [Not Recovered/Not Resolved]
  - Breast mass [Not Recovered/Not Resolved]
  - Prostate cancer recurrent [Not Recovered/Not Resolved]
  - Hormone-dependent prostate cancer [Not Recovered/Not Resolved]
  - Contraindicated product administered [Unknown]
  - Prostate cancer [Recovering/Resolving]

NARRATIVE: CASE EVENT DATE: 20150101
